FAERS Safety Report 15437197 (Version 4)
Quarter: 2019Q3

REPORT INFORMATION
  Report Type: Report from Study
  Country: US (occurrence: US)
  Receive Date: 20180927
  Receipt Date: 20190701
  Transmission Date: 20191004
  Serious: No
  Sender: FDA-Public Use
  Company Number: US-CLOVIS ONCOLOGY-CLO-2018-001317

PATIENT
  Age: 63 Year
  Sex: Female

DRUGS (5)
  1. RUBRACA [Suspect]
     Active Substance: RUCAPARIB CAMSYLATE
     Dosage: 600 MG, BID
     Route: 048
     Dates: start: 20180906
  2. AMOXICILLIN. [Suspect]
     Active Substance: AMOXICILLIN
     Indication: PRODUCT USED FOR UNKNOWN INDICATION
  3. RUBRACA [Suspect]
     Active Substance: RUCAPARIB CAMSYLATE
     Indication: OVARIAN CANCER
     Dosage: 300 MG, BID
     Route: 048
     Dates: start: 20180906
  4. RUBRACA [Suspect]
     Active Substance: RUCAPARIB CAMSYLATE
     Dosage: 600 MG, BID
     Route: 048
     Dates: start: 20180906
  5. ZOFRAN [Suspect]
     Active Substance: ONDANSETRON HYDROCHLORIDE
     Indication: PRODUCT USED FOR UNKNOWN INDICATION

REACTIONS (17)
  - Carbohydrate antigen 125 increased [Not Recovered/Not Resolved]
  - Intestinal mass [Not Recovered/Not Resolved]
  - Ovarian cancer recurrent [Not Recovered/Not Resolved]
  - Weight decreased [Unknown]
  - Nausea [Not Recovered/Not Resolved]
  - Hypersensitivity [Not Recovered/Not Resolved]
  - Dyspepsia [Not Recovered/Not Resolved]
  - Pain [Recovered/Resolved]
  - Feeling abnormal [Not Recovered/Not Resolved]
  - Abdominal pain upper [Unknown]
  - Abdominal discomfort [Unknown]
  - Hypophagia [Not Recovered/Not Resolved]
  - Headache [Not Recovered/Not Resolved]
  - Constipation [Unknown]
  - Malignant neoplasm progression [Not Recovered/Not Resolved]
  - Decreased appetite [Unknown]
  - Nausea [Unknown]

NARRATIVE: CASE EVENT DATE: 2018
